FAERS Safety Report 16640792 (Version 2)
Quarter: 2019Q3

REPORT INFORMATION
  Report Type: Spontaneous
  Country: US (occurrence: US)
  Receive Date: 20190729
  Receipt Date: 20190828
  Transmission Date: 20191004
  Serious: Yes (Hospitalization)
  Sender: FDA-Public Use
  Company Number: US-ROCHE-2362659

PATIENT
  Age: 78 Year
  Sex: Male
  Weight: 85.35 kg

DRUGS (7)
  1. ESBRIET [Suspect]
     Active Substance: PIRFENIDONE
     Indication: IDIOPATHIC PULMONARY FIBROSIS
     Dosage: TAPER DOSE: 3 PILLS PER DAY FOR 1 WEEK
     Route: 048
  2. ESBRIET [Suspect]
     Active Substance: PIRFENIDONE
     Dosage: 2 PILLS PER DAY FOR 1 WEEK
     Route: 048
     Dates: start: 201906
  3. LEXAPRO [Concomitant]
     Active Substance: ESCITALOPRAM OXALATE
     Route: 048
  4. LOSARTAN. [Concomitant]
     Active Substance: LOSARTAN
     Route: 048
  5. ESBRIET [Suspect]
     Active Substance: PIRFENIDONE
     Route: 048
     Dates: start: 20190624
  6. ATORVASTATIN [Concomitant]
     Active Substance: ATORVASTATIN
     Route: 048
  7. PRILOSEC [Concomitant]
     Active Substance: OMEPRAZOLE MAGNESIUM
     Route: 048

REACTIONS (1)
  - Transient global amnesia [Recovered/Resolved]

NARRATIVE: CASE EVENT DATE: 20190721
